FAERS Safety Report 13754113 (Version 1)
Quarter: 2017Q3

REPORT INFORMATION
  Report Type: Spontaneous
  Country: US (occurrence: US)
  Receive Date: 20170714
  Receipt Date: 20170714
  Transmission Date: 20171127
  Serious: No
  Sender: FDA-Public Use
  Company Number: None

PATIENT
  Age: 66 Year
  Sex: Male

DRUGS (2)
  1. CREST BAKING SODA AND PEROXIDE WHITENING WITH TARTAR PROTECTION [Suspect]
     Active Substance: SODIUM FLUORIDE
  2. CREST COMPLETE MULTI-BENEFIT WHITENING PLUS SCOPE [Suspect]
     Active Substance: SODIUM FLUORIDE

REACTIONS (3)
  - Stomatitis [None]
  - Oral discomfort [None]
  - Product substitution issue [None]

NARRATIVE: CASE EVENT DATE: 20170615
